FAERS Safety Report 7375611-4 (Version None)
Quarter: 2011Q1

REPORT INFORMATION
  Report Type: 
  Country: None (occurrence: None)
  Receive Date: 20110325
  Receipt Date: 20101112
  Transmission Date: 20110831
  Serious: No
  Sender: FDA-Public Use
  Company Number: US-BAYER-2011-025713

PATIENT
  Sex: Male
  Weight: 88 kg

DRUGS (2)
  1. ALEVE [Suspect]
     Indication: INFLAMMATION
     Route: 048
  2. ALEVE [Suspect]
     Indication: ARTHRALGIA

REACTIONS (1)
  - ABDOMINAL DISCOMFORT [None]
